FAERS Safety Report 7164332-9 (Version None)
Quarter: 2010Q4

REPORT INFORMATION
  Report Type: 
  Country: None (occurrence: None)
  Receive Date: 20101215
  Receipt Date: 20101209
  Transmission Date: 20110411
  Serious: Yes (Other)
  Sender: FDA-Public Use
  Company Number: JP-B.I. PHARMACEUTICALS,INC./RIDGEFIELD-2010-BP-13960NB

PATIENT
  Age: 92 Year
  Sex: Female

DRUGS (4)
  1. MICARDIS [Suspect]
     Indication: HYPERTENSION
     Dosage: 40 MG
     Route: 048
  2. AMLODIPINE OD [Concomitant]
     Dosage: 5 MG
     Route: 048
  3. UNKNOWN DRUG [Concomitant]
  4. UNKNOWN DRUG [Concomitant]

REACTIONS (2)
  - HYPONATRAEMIA [None]
  - OEDEMA [None]
